FAERS Safety Report 5820344-6 (Version None)
Quarter: 2008Q3

REPORT INFORMATION
  Report Type: 
  Country: None (occurrence: None)
  Receive Date: 20080724
  Receipt Date: 20070611
  Transmission Date: 20090109
  Serious: No
  Sender: FDA-Public Use
  Company Number: A0655066A

PATIENT
  Age: 58 Year
  Sex: Male

DRUGS (5)
  1. AVANDIA [Suspect]
     Dosage: 4MG PER DAY
     Route: 048
  2. BYETTA [Concomitant]
  3. INSULIN [Concomitant]
  4. HEART MEDICATION [Concomitant]
  5. WATER PILL [Concomitant]

REACTIONS (4)
  - ARRHYTHMIA [None]
  - HYPOAESTHESIA [None]
  - PAIN IN EXTREMITY [None]
  - TACHYCARDIA [None]
